FAERS Safety Report 18940923 (Version 1)
Quarter: 2021Q1

REPORT INFORMATION
  Report Type: Spontaneous
  Country: GB (occurrence: GB)
  Receive Date: 20210225
  Receipt Date: 20210225
  Transmission Date: 20210420
  Serious: Yes (Hospitalization, Other)
  Sender: FDA-Public Use
  Company Number: GB-PFIZER INC-2021157717

PATIENT
  Age: 43 Year
  Sex: Male

DRUGS (1)
  1. DEPO?MEDRONE [Suspect]
     Active Substance: METHYLPREDNISOLONE
     Indication: OSTEOARTHRITIS
     Dosage: 2 ML
     Route: 014

REACTIONS (2)
  - Septic arthritis staphylococcal [Recovering/Resolving]
  - Postoperative wound infection [Recovering/Resolving]
